FAERS Safety Report 18056097 (Version 3)
Quarter: 2023Q1

REPORT INFORMATION
  Report Type: Spontaneous
  Country: GB (occurrence: GB)
  Receive Date: 20200722
  Receipt Date: 20230131
  Transmission Date: 20230417
  Serious: Yes (Hospitalization)
  Sender: FDA-Public Use
  Company Number: None

PATIENT
  Age: 58 Year
  Sex: Female

DRUGS (126)
  1. LETROZOLE [Suspect]
     Active Substance: LETROZOLE
     Indication: Breast cancer
     Dosage: 2.5 MG, QD
     Route: 048
     Dates: start: 201507, end: 20170427
  2. TRASTUZUMAB [Suspect]
     Active Substance: TRASTUZUMAB
     Indication: Breast cancer
     Dosage: 600 MG, QMO
     Route: 058
     Dates: start: 20150716, end: 20171222
  3. EXEMESTANE [Suspect]
     Active Substance: EXEMESTANE
     Indication: Breast cancer
     Dosage: 25 MG, QD
     Route: 048
     Dates: start: 20170428, end: 20180110
  4. ADO-TRASTUZUMAB EMTANSINE [Suspect]
     Active Substance: ADO-TRASTUZUMAB EMTANSINE
     Indication: Breast cancer
     Dosage: 420 MG, Q4W
     Route: 042
     Dates: start: 20180118
  5. WHOLE BLOOD [Concomitant]
     Active Substance: WHOLE BLOOD
     Indication: Product used for unknown indication
     Dosage: 1 OT
     Route: 042
     Dates: start: 20160317, end: 20160317
  6. WHOLE BLOOD [Concomitant]
     Active Substance: WHOLE BLOOD
     Dosage: 1 OT
     Route: 042
     Dates: start: 20161022, end: 20161022
  7. WHOLE BLOOD [Concomitant]
     Active Substance: WHOLE BLOOD
     Dosage: 2 DF
     Route: 042
     Dates: start: 20170906, end: 20170906
  8. WHOLE BLOOD [Concomitant]
     Active Substance: WHOLE BLOOD
     Dosage: 1 OT
     Route: 042
     Dates: start: 20181022, end: 20181022
  9. WHOLE BLOOD [Concomitant]
     Active Substance: WHOLE BLOOD
     Dosage: 1 OT
     Route: 042
     Dates: start: 20190611, end: 20190611
  10. WHOLE BLOOD [Concomitant]
     Active Substance: WHOLE BLOOD
     Dosage: 1 OT
     Route: 042
     Dates: start: 20191112, end: 20191112
  11. WHOLE BLOOD [Concomitant]
     Active Substance: WHOLE BLOOD
     Dosage: UNK (3 UNIT)
     Route: 042
     Dates: start: 20200501, end: 20200501
  12. WHOLE BLOOD [Concomitant]
     Active Substance: WHOLE BLOOD
     Dosage: UNK (3 UNIT)
     Route: 042
     Dates: start: 20200613, end: 20200613
  13. COTRIMOXAZOLE [Concomitant]
     Active Substance: SULFAMETHOXAZOLE\TRIMETHOPRIM
     Indication: Product used for unknown indication
     Dosage: 2 DF, QD
     Route: 048
     Dates: start: 20181015, end: 20181022
  14. COTRIMOXAZOLE [Concomitant]
     Active Substance: SULFAMETHOXAZOLE\TRIMETHOPRIM
     Dosage: 1 DF
     Route: 048
     Dates: start: 20181015, end: 20181022
  15. COTRIMOXAZOLE [Concomitant]
     Active Substance: SULFAMETHOXAZOLE\TRIMETHOPRIM
     Dosage: 1920 MG, QD
     Route: 048
     Dates: start: 20190206, end: 20190211
  16. COTRIMOXAZOLE [Concomitant]
     Active Substance: SULFAMETHOXAZOLE\TRIMETHOPRIM
     Dosage: 960 MG
     Route: 048
     Dates: start: 20190206, end: 20190211
  17. COTRIMOXAZOLE [Concomitant]
     Active Substance: SULFAMETHOXAZOLE\TRIMETHOPRIM
     Dosage: 1920 MG, QD
     Route: 042
     Dates: start: 20190611, end: 20190611
  18. COTRIMOXAZOLE [Concomitant]
     Active Substance: SULFAMETHOXAZOLE\TRIMETHOPRIM
     Dosage: 960 MG
     Route: 042
     Dates: start: 20190611, end: 20190611
  19. ACETAMINOPHEN [Concomitant]
     Active Substance: ACETAMINOPHEN
     Indication: Product used for unknown indication
     Dosage: 500 MG
     Route: 048
     Dates: start: 201504
  20. MEROPENEM [Concomitant]
     Active Substance: MEROPENEM
     Indication: Product used for unknown indication
     Dosage: 3 G, QD
     Route: 042
     Dates: start: 20180813, end: 20180814
  21. MEROPENEM [Concomitant]
     Active Substance: MEROPENEM
     Dosage: 1 G
     Route: 042
     Dates: start: 20180813, end: 20180814
  22. MEROPENEM [Concomitant]
     Active Substance: MEROPENEM
     Dosage: 1 G
     Route: 042
     Dates: start: 20181222, end: 20181227
  23. MEROPENEM [Concomitant]
     Active Substance: MEROPENEM
     Dosage: 3 G, QW
     Route: 042
     Dates: start: 20181222, end: 20181227
  24. MEROPENEM [Concomitant]
     Active Substance: MEROPENEM
     Dosage: 3 G, QW
     Route: 042
     Dates: start: 20190205, end: 20190205
  25. MEROPENEM [Concomitant]
     Active Substance: MEROPENEM
     Dosage: 1 G
     Route: 042
     Dates: start: 20190205, end: 20190205
  26. MEROPENEM [Concomitant]
     Active Substance: MEROPENEM
     Dosage: 3 G, QW
     Route: 042
     Dates: start: 20190610, end: 20190617
  27. MEROPENEM [Concomitant]
     Active Substance: MEROPENEM
     Dosage: 1 G
     Route: 042
     Dates: start: 20190610, end: 20190617
  28. MORPHINE SULFATE [Concomitant]
     Active Substance: MORPHINE SULFATE
     Indication: Product used for unknown indication
     Dosage: 30 MG, QD
     Route: 048
     Dates: start: 201504
  29. MORPHINE SULFATE [Concomitant]
     Active Substance: MORPHINE SULFATE
     Dosage: 60 MG
     Route: 048
     Dates: start: 201504, end: 20160516
  30. MORPHINE SULFATE [Concomitant]
     Active Substance: MORPHINE SULFATE
     Dosage: 40 MG
     Route: 048
     Dates: start: 20150516, end: 201611
  31. MORPHINE SULFATE [Concomitant]
     Active Substance: MORPHINE SULFATE
     Dosage: 30 MG
     Route: 048
     Dates: start: 201611
  32. MORPHINE SULFATE [Concomitant]
     Active Substance: MORPHINE SULFATE
     Dosage: 10 MG
     Route: 048
     Dates: start: 20171224
  33. LINEZOLID [Concomitant]
     Active Substance: LINEZOLID
     Indication: Product used for unknown indication
     Dosage: 1200 MG, QD
     Route: 042
     Dates: start: 20181223, end: 20181227
  34. LINEZOLID [Concomitant]
     Active Substance: LINEZOLID
     Dosage: 600 MG
     Route: 048
     Dates: start: 20181223, end: 20181227
  35. LINEZOLID [Concomitant]
     Active Substance: LINEZOLID
     Dosage: 1200 MG, QD
     Route: 042
     Dates: start: 20190611, end: 20190621
  36. LINEZOLID [Concomitant]
     Active Substance: LINEZOLID
     Dosage: 600 MG
     Route: 042
     Dates: start: 20190611, end: 20190621
  37. LINEZOLID [Concomitant]
     Active Substance: LINEZOLID
     Dosage: 1.2 G
     Route: 042
     Dates: start: 20200206, end: 20200212
  38. LOPERAMIDE [Concomitant]
     Active Substance: LOPERAMIDE
     Indication: Product used for unknown indication
     Dosage: UNK
     Route: 065
     Dates: start: 201804, end: 2019
  39. CIPROFLOXACIN [Concomitant]
     Active Substance: CIPROFLOXACIN
     Indication: Product used for unknown indication
     Dosage: 1500 MG, QD
     Route: 048
     Dates: start: 20190205, end: 20190206
  40. CIPROFLOXACIN [Concomitant]
     Active Substance: CIPROFLOXACIN
     Dosage: 750 MG
     Route: 048
     Dates: start: 20190205, end: 20190206
  41. DEXAMETHASONE [Concomitant]
     Active Substance: DEXAMETHASONE
     Indication: Product used for unknown indication
     Dosage: 16 MG, QD
     Route: 048
     Dates: start: 20151008, end: 20151020
  42. DEXAMETHASONE [Concomitant]
     Active Substance: DEXAMETHASONE
     Dosage: 8 MG
     Route: 048
     Dates: start: 20151008, end: 20151020
  43. DEXAMETHASONE [Concomitant]
     Active Substance: DEXAMETHASONE
     Dosage: 4 MG
     Route: 048
     Dates: start: 20151020, end: 20151103
  44. DEXAMETHASONE [Concomitant]
     Active Substance: DEXAMETHASONE
     Dosage: 8 MG, QD
     Route: 048
     Dates: start: 20151020, end: 20151103
  45. DEXAMETHASONE [Concomitant]
     Active Substance: DEXAMETHASONE
     Dosage: 8 MG, QD
     Route: 048
     Dates: start: 20151104, end: 20151110
  46. DEXAMETHASONE [Concomitant]
     Active Substance: DEXAMETHASONE
     Dosage: 4 MG
     Route: 048
     Dates: start: 20151104, end: 20151110
  47. DEXAMETHASONE [Concomitant]
     Active Substance: DEXAMETHASONE
     Dosage: 2 MG, QD
     Route: 048
     Dates: start: 20151111, end: 20151117
  48. DEXAMETHASONE [Concomitant]
     Active Substance: DEXAMETHASONE
     Dosage: 2 MG
     Route: 048
     Dates: start: 20151111, end: 20151117
  49. DEXAMETHASONE [Concomitant]
     Active Substance: DEXAMETHASONE
     Dosage: 2 MG, QD
     Route: 048
     Dates: start: 20151118, end: 20151124
  50. DEXAMETHASONE [Concomitant]
     Active Substance: DEXAMETHASONE
     Dosage: 1 MG
     Route: 048
     Dates: start: 20151118, end: 20151124
  51. DEXAMETHASONE [Concomitant]
     Active Substance: DEXAMETHASONE
     Dosage: 1 MG
     Route: 048
     Dates: start: 20151125, end: 20151202
  52. DEXAMETHASONE [Concomitant]
     Active Substance: DEXAMETHASONE
     Dosage: 2 MG, QD
     Route: 048
     Dates: start: 20151125, end: 20151202
  53. DOXYCYCLINE [Concomitant]
     Active Substance: DOXYCYCLINE
     Indication: Product used for unknown indication
     Dosage: 100 MG, QD
     Route: 048
     Dates: start: 20170112, end: 20170118
  54. DOXYCYCLINE [Concomitant]
     Active Substance: DOXYCYCLINE
     Dosage: 200 MG, QD
     Route: 048
     Dates: start: 20180814, end: 20180814
  55. DOXYCYCLINE [Concomitant]
     Active Substance: DOXYCYCLINE
     Dosage: 100 MG
     Route: 048
     Dates: start: 20180814, end: 20180814
  56. DOXYCYCLINE [Concomitant]
     Active Substance: DOXYCYCLINE
     Dosage: 100 MG, QD
     Route: 048
     Dates: start: 20180815
  57. DOXYCYCLINE [Concomitant]
     Active Substance: DOXYCYCLINE
     Dosage: 200 MG, QD
     Route: 048
     Dates: start: 20190929, end: 20191005
  58. DOXYCYCLINE [Concomitant]
     Active Substance: DOXYCYCLINE
     Dosage: 200 MG, QD
     Route: 048
     Dates: start: 20191223, end: 20191230
  59. DOXYCYCLINE [Concomitant]
     Active Substance: DOXYCYCLINE
     Dosage: 200 MG, QD
     Route: 048
     Dates: start: 20191223, end: 20191230
  60. DENOSUMAB [Concomitant]
     Active Substance: DENOSUMAB
     Indication: Product used for unknown indication
     Dosage: 120 MG
     Route: 058
     Dates: start: 20170604, end: 20170613
  61. DENOSUMAB [Concomitant]
     Active Substance: DENOSUMAB
     Dosage: 120 MG
     Route: 058
     Dates: start: 20180118
  62. ENOXAPARIN SODIUM [Concomitant]
     Active Substance: ENOXAPARIN SODIUM
     Indication: Prophylaxis
     Dosage: 40 MG, QD
     Route: 058
     Dates: start: 20190610, end: 20190623
  63. ENOXAPARIN SODIUM [Concomitant]
     Active Substance: ENOXAPARIN SODIUM
     Dosage: 40 MG, QD
     Route: 058
     Dates: start: 20200622, end: 20200623
  64. ACYCLOVIR [Concomitant]
     Active Substance: ACYCLOVIR
     Indication: Product used for unknown indication
     Dosage: 800 MG
     Route: 048
     Dates: start: 20160727, end: 20160807
  65. ACYCLOVIR [Concomitant]
     Active Substance: ACYCLOVIR
     Dosage: UNK
     Route: 061
     Dates: start: 20161213, end: 20161218
  66. AMITRIPTYLINE [Concomitant]
     Active Substance: AMITRIPTYLINE
     Indication: Product used for unknown indication
     Dosage: 10 MG, QD
     Route: 048
     Dates: start: 20160727, end: 20160809
  67. AMOXICILLIN\CLAVULANATE POTASSIUM [Concomitant]
     Active Substance: AMOXICILLIN\CLAVULANATE POTASSIUM
     Indication: Product used for unknown indication
     Dosage: 625 MG, QD
     Route: 048
     Dates: start: 20190205, end: 20190206
  68. AMOXICILLIN\CLAVULANATE POTASSIUM [Concomitant]
     Active Substance: AMOXICILLIN\CLAVULANATE POTASSIUM
     Dosage: UNK
     Route: 048
     Dates: start: 20190322
  69. METRONIDAZOLE [Concomitant]
     Active Substance: METRONIDAZOLE
     Indication: Product used for unknown indication
     Dosage: UNK
     Route: 048
     Dates: start: 20170701, end: 20170708
  70. METRONIDAZOLE [Concomitant]
     Active Substance: METRONIDAZOLE
     Dosage: 1600 MG, QD
     Route: 048
     Dates: start: 20180915, end: 20180921
  71. METRONIDAZOLE [Concomitant]
     Active Substance: METRONIDAZOLE
     Dosage: 400 MG
     Route: 048
     Dates: start: 20180915, end: 20180921
  72. GABAPENTIN [Concomitant]
     Active Substance: GABAPENTIN
     Indication: Product used for unknown indication
     Dosage: 3.6 G, QD
     Route: 048
     Dates: start: 20151231
  73. GABAPENTIN [Concomitant]
     Active Substance: GABAPENTIN
     Dosage: 300 MG
     Route: 048
     Dates: start: 20151231
  74. GABAPENTIN [Concomitant]
     Active Substance: GABAPENTIN
     Dosage: 1.2 G
     Route: 048
     Dates: start: 20151231
  75. MAGNESIUM ASPARTATE [Concomitant]
     Active Substance: MAGNESIUM ASPARTATE
     Indication: Product used for unknown indication
     Dosage: 13 G, QD
     Route: 048
     Dates: start: 20191111
  76. MAGNESIUM ASPARTATE [Concomitant]
     Active Substance: MAGNESIUM ASPARTATE
     Dosage: 6.5 G
     Route: 048
     Dates: start: 20191111
  77. PROMETHAZINE HYDROCHLORIDE [Concomitant]
     Active Substance: PROMETHAZINE HYDROCHLORIDE
     Indication: Product used for unknown indication
     Dosage: 25 MG, QD
     Route: 048
  78. PROMETHAZINE HYDROCHLORIDE [Concomitant]
     Active Substance: PROMETHAZINE HYDROCHLORIDE
     Dosage: 50 MG, QD
     Route: 048
  79. TINZAPARIN [Concomitant]
     Active Substance: TINZAPARIN
     Indication: Product used for unknown indication
     Dosage: 1 OT, QD
     Route: 058
     Dates: start: 20190928
  80. TINZAPARIN [Concomitant]
     Active Substance: TINZAPARIN
     Dosage: 2200 IU, QD
     Route: 058
     Dates: start: 20200624, end: 20200624
  81. TINZAPARIN [Concomitant]
     Active Substance: TINZAPARIN
     Dosage: 40 MG, QD
     Route: 058
     Dates: start: 20200625, end: 20200625
  82. VITAMIN D3 [Concomitant]
     Active Substance: CHOLECALCIFEROL
     Indication: Product used for unknown indication
     Dosage: 400 IU, QD
     Route: 048
     Dates: start: 20150827
  83. ZOMETA [Concomitant]
     Active Substance: ZOLEDRONIC ACID
     Indication: Product used for unknown indication
     Dosage: 4 MG
     Route: 042
     Dates: start: 20150827, end: 20160314
  84. CITALOPRAM [Concomitant]
     Active Substance: CITALOPRAM HYDROBROMIDE
     Indication: Product used for unknown indication
     Dosage: 40 MG, QD
     Route: 048
     Dates: start: 2005
  85. BUTYLSCOPOLAMINE BROMIDE [Concomitant]
     Active Substance: BUTYLSCOPOLAMINE BROMIDE
     Indication: Product used for unknown indication
     Dosage: 30 MG, QD
     Route: 048
     Dates: start: 20181222
  86. BUTYLSCOPOLAMINE BROMIDE [Concomitant]
     Active Substance: BUTYLSCOPOLAMINE BROMIDE
     Dosage: 10 MG
     Route: 048
     Dates: start: 20181222
  87. PIPERACILLIN SODIUM\TAZOBACTAM SODIUM [Concomitant]
     Active Substance: PIPERACILLIN SODIUM\TAZOBACTAM SODIUM
     Indication: Product used for unknown indication
     Dosage: 13.5 G, QD
     Route: 042
     Dates: start: 20191221, end: 20191227
  88. PIPERACILLIN SODIUM\TAZOBACTAM SODIUM [Concomitant]
     Active Substance: PIPERACILLIN SODIUM\TAZOBACTAM SODIUM
     Dosage: 4.5 G
     Route: 042
     Dates: start: 20191221, end: 20191227
  89. PIPERACILLIN SODIUM\TAZOBACTAM SODIUM [Concomitant]
     Active Substance: PIPERACILLIN SODIUM\TAZOBACTAM SODIUM
     Dosage: 4.5 G
     Route: 042
     Dates: start: 20200202, end: 20200206
  90. PENICILLIN G [Concomitant]
     Active Substance: PENICILLIN G
     Indication: Product used for unknown indication
     Dosage: 4.8 G, QD
     Route: 042
     Dates: start: 20180912, end: 20180915
  91. PENICILLIN G [Concomitant]
     Active Substance: PENICILLIN G
     Dosage: 1.2 G
     Route: 042
     Dates: start: 20180912, end: 20180915
  92. FUROSEMIDE [Concomitant]
     Active Substance: FUROSEMIDE
     Indication: Product used for unknown indication
     Dosage: 80 MG, QD
     Route: 048
     Dates: start: 20151112, end: 20151118
  93. FUROSEMIDE [Concomitant]
     Active Substance: FUROSEMIDE
     Dosage: 20 MG, QD
     Route: 048
     Dates: start: 20191113, end: 20191116
  94. FUROSEMIDE [Concomitant]
     Active Substance: FUROSEMIDE
     Dosage: 40 MG, QD
     Route: 048
     Dates: start: 20191117
  95. FUROSEMIDE [Concomitant]
     Active Substance: FUROSEMIDE
     Dosage: 40 MG
     Route: 042
     Dates: start: 20200622, end: 20200623
  96. FUROSEMIDE [Concomitant]
     Active Substance: FUROSEMIDE
     Dosage: 40 MG
     Route: 042
     Dates: start: 20200623, end: 20200626
  97. FUROSEMIDE [Concomitant]
     Active Substance: FUROSEMIDE
     Dosage: 40 MG
     Route: 048
     Dates: start: 20200626
  98. FLUCLOXACILLIN [Concomitant]
     Active Substance: FLUCLOXACILLIN
     Indication: Product used for unknown indication
     Dosage: 2000 MG
     Route: 048
     Dates: start: 20161110, end: 20161117
  99. FLUCLOXACILLIN [Concomitant]
     Active Substance: FLUCLOXACILLIN
     Dosage: 500 MG
     Route: 048
     Dates: start: 20161110, end: 20161117
  100. FLUCLOXACILLIN [Concomitant]
     Active Substance: FLUCLOXACILLIN
     Dosage: 2000 MG, QD
     Route: 048
     Dates: start: 20180910, end: 20180912
  101. FLUCLOXACILLIN [Concomitant]
     Active Substance: FLUCLOXACILLIN
     Dosage: 500 MG
     Route: 048
     Dates: start: 20180910, end: 20180912
  102. FLUCLOXACILLIN [Concomitant]
     Active Substance: FLUCLOXACILLIN
     Dosage: 1 G
     Route: 042
     Dates: start: 20180912, end: 20180915
  103. FLUCLOXACILLIN [Concomitant]
     Active Substance: FLUCLOXACILLIN
     Dosage: 4 G, QD
     Route: 042
     Dates: start: 20180912, end: 20180915
  104. FLUCLOXACILLIN [Concomitant]
     Active Substance: FLUCLOXACILLIN
     Dosage: 500 MG
     Route: 048
     Dates: start: 20180915, end: 20180921
  105. FLUCLOXACILLIN [Concomitant]
     Active Substance: FLUCLOXACILLIN
     Dosage: 2000 MG, QD
     Route: 048
     Dates: start: 20180915, end: 20180921
  106. FLUCLOXACILLIN [Concomitant]
     Active Substance: FLUCLOXACILLIN
     Dosage: 1 G
     Route: 042
     Dates: start: 20200130, end: 20200202
  107. NAPROXEN [Concomitant]
     Active Substance: NAPROXEN
     Indication: Product used for unknown indication
     Dosage: 500 MG, QD
     Route: 048
  108. NAPROXEN [Concomitant]
     Active Substance: NAPROXEN
     Dosage: 250 MG
     Route: 048
  109. LISINOPRIL [Concomitant]
     Active Substance: LISINOPRIL
     Indication: Product used for unknown indication
     Dosage: 7.5 MG, QD
     Route: 048
     Dates: start: 20161110
  110. LISINOPRIL [Concomitant]
     Active Substance: LISINOPRIL
     Dosage: 2.5 MG
     Route: 048
     Dates: start: 20161110
  111. TEICOPLANIN [Concomitant]
     Active Substance: TEICOPLANIN
     Indication: Product used for unknown indication
     Dosage: 1200 MG, QD
     Route: 042
     Dates: start: 20181019, end: 20181025
  112. TEICOPLANIN [Concomitant]
     Active Substance: TEICOPLANIN
     Dosage: 600 MG
     Route: 042
     Dates: start: 20181019, end: 20181025
  113. DERMOL [Concomitant]
     Active Substance: BENZALKONIUM CHLORIDE\CHLORHEXIDINE HYDROCHLORIDE\ISOPROPYL MYRISTATE\PARAFFIN
     Indication: Product used for unknown indication
     Dosage: 4 OT, QD
     Route: 061
  114. DIAZEPAM [Concomitant]
     Active Substance: DIAZEPAM
     Indication: Product used for unknown indication
     Dosage: 6 MG, QD
     Route: 048
     Dates: start: 20180105
  115. DIAZEPAM [Concomitant]
     Active Substance: DIAZEPAM
     Dosage: 2 MG
     Route: 048
     Dates: start: 20180105
  116. LANSOPRAZOLE [Concomitant]
     Active Substance: LANSOPRAZOLE
     Indication: Product used for unknown indication
     Dosage: 15 MG, QD
     Route: 048
     Dates: start: 2001
  117. LANSOPRAZOLE [Concomitant]
     Active Substance: LANSOPRAZOLE
     Dosage: 30 MG, QD
     Route: 048
     Dates: start: 2001
  118. MORPHINE SULFATE [Concomitant]
     Active Substance: MORPHINE SULFATE
     Indication: Product used for unknown indication
     Dosage: 60 MG, QD
     Route: 048
     Dates: start: 201611
  119. MORPHINE SULFATE [Concomitant]
     Active Substance: MORPHINE SULFATE
     Dosage: 30 MG
     Route: 048
     Dates: start: 201611
  120. CLINDAMYCIN [Concomitant]
     Active Substance: CLINDAMYCIN
     Indication: Product used for unknown indication
     Dosage: 4.8 G, QD
     Route: 042
     Dates: start: 20190611, end: 20190621
  121. CLINDAMYCIN [Concomitant]
     Active Substance: CLINDAMYCIN
     Dosage: 1.2 G
     Route: 042
     Dates: start: 20190611, end: 20190621
  122. CLINDAMYCIN [Concomitant]
     Active Substance: CLINDAMYCIN
     Dosage: 300 MG
     Route: 048
     Dates: start: 20200206, end: 20200212
  123. CYCLIZINE [Concomitant]
     Active Substance: CYCLIZINE
     Indication: Product used for unknown indication
     Dosage: 50 MG, QD
     Route: 048
     Dates: start: 201507
  124. RIFAMPIN [Concomitant]
     Active Substance: RIFAMPIN
     Indication: Product used for unknown indication
     Dosage: 300 MG
     Route: 048
     Dates: start: 20200212, end: 20200212
  125. VANCOMYCIN [Concomitant]
     Active Substance: VANCOMYCIN
     Indication: Product used for unknown indication
     Dosage: 1.5 G
     Route: 042
     Dates: start: 20200201, end: 20200206
  126. LEVOTHYROXINE [Concomitant]
     Active Substance: LEVOTHYROXINE
     Indication: Product used for unknown indication
     Dosage: 50 UG, QD
     Route: 048
     Dates: start: 20200311

REACTIONS (2)
  - Pneumonia [Recovered/Resolved]
  - Pyrexia [Not Recovered/Not Resolved]

NARRATIVE: CASE EVENT DATE: 20191217
